FAERS Safety Report 25084944 (Version 1)
Quarter: 2025Q1

REPORT INFORMATION
  Report Type: Other
  Country: ES (occurrence: ES)
  Receive Date: 20250317
  Receipt Date: 20250317
  Transmission Date: 20250409
  Serious: Yes (Life-Threatening, Hospitalization, Other)
  Sender: IBSA INSTITUT BIOCHIMIQUE
  Company Number: ES-IBSA PHARMA INC.-2025IBS000155

PATIENT

DRUGS (6)
  1. LEVOTHYROXINE SODIUM [Suspect]
     Active Substance: LEVOTHYROXINE SODIUM
     Indication: Hypothyroidism
     Dates: start: 20241025, end: 20241101
  2. PIPERACILLIN AND TAZOBACTAM [Suspect]
     Active Substance: PIPERACILLIN SODIUM\TAZOBACTAM SODIUM
     Indication: Gastrointestinal infection
     Route: 042
     Dates: start: 20241025, end: 20241209
  3. ANIDULAFUNGIN [Concomitant]
     Active Substance: ANIDULAFUNGIN
     Indication: Gastrointestinal infection
     Route: 042
     Dates: start: 20241107, end: 20241210
  4. METAMIZOL [Concomitant]
     Active Substance: METAMIZOLE SODIUM
     Indication: Pain
     Route: 042
     Dates: start: 20241107, end: 20241211
  5. DEXKETOPROFEN TROMETAMOL [Concomitant]
     Active Substance: DEXKETOPROFEN TROMETAMOL
     Indication: Pain
     Route: 042
     Dates: start: 20241025, end: 20241211
  6. SOMATOSTATIN [Concomitant]
     Active Substance: SOMATOSTATIN
     Indication: Fistula
     Route: 042
     Dates: start: 20241107, end: 20241211

REACTIONS (1)
  - Drug reaction with eosinophilia and systemic symptoms [Recovered/Resolved]
